FAERS Safety Report 8213212-6 (Version None)
Quarter: 2012Q1

REPORT INFORMATION
  Report Type: 
  Country: None (occurrence: None)
  Receive Date: 20120228
  Receipt Date: 20110928
  Transmission Date: 20120608
  Serious: Yes (Life-Threatening, Other)
  Sender: FDA-Public Use
  Company Number: RB-26987-2011

PATIENT
  Sex: Female

DRUGS (4)
  1. KLONOPIN [Suspect]
     Indication: INSOMNIA
     Dosage: (1 MG 1 MILLIGRAM AT BEDTIME. ORAL)
     Route: 048
  2. SUBOXONE [Suspect]
     Indication: DRUG DEPENDENCE
     Dosage: (SUBLINGUAL)
     Route: 060
     Dates: end: 20110427
  3. SUBOXONE [Suspect]
     Indication: DRUG DEPENDENCE
     Dosage: (8 MG SUBLINGUAL)
  4. PROZAC [Suspect]
     Indication: BIPOLAR DISORDER
     Dosage: (20 MG ORAL
     Route: 048

REACTIONS (2)
  - OVERDOSE [None]
  - SUBSTANCE ABUSE [None]
